FAERS Safety Report 4377321-4 (Version None)
Quarter: 2004Q2

REPORT INFORMATION
  Report Type: 
  Country: None (occurrence: None)
  Receive Date: 20040609
  Receipt Date: 20040413
  Transmission Date: 20050107
  Serious: No
  Sender: FDA-Public Use
  Company Number: 2004209253US

PATIENT
  Age: 50 Year
  Sex: Male

DRUGS (5)
  1. BEXTRA [Suspect]
     Indication: MUSCLE SPASMS
     Dosage: 20 MG, BID
     Dates: start: 20040413, end: 20040413
  2. AMARYL [Concomitant]
  3. LISINOPRIL [Concomitant]
  4. DARVOCET-N 100 [Concomitant]
  5. FLEXERIL [Concomitant]

REACTIONS (1)
  - PSYCHOMOTOR HYPERACTIVITY [None]
